FAERS Safety Report 25023019 (Version 1)
Quarter: 2025Q1

REPORT INFORMATION
  Report Type: Spontaneous
  Country: ES (occurrence: ES)
  Receive Date: 20250228
  Receipt Date: 20250228
  Transmission Date: 20250409
  Serious: Yes (Other)
  Sender: MYLAN
  Company Number: ES-ASTELLAS-2025-AER-008658

PATIENT
  Sex: Female

DRUGS (12)
  1. TACROLIMUS [Suspect]
     Active Substance: TACROLIMUS
     Indication: Management of reproduction
  2. TACROLIMUS [Suspect]
     Active Substance: TACROLIMUS
     Route: 065
  3. TACROLIMUS [Suspect]
     Active Substance: TACROLIMUS
     Route: 065
  4. TACROLIMUS [Suspect]
     Active Substance: TACROLIMUS
  5. HEPARIN [Suspect]
     Active Substance: HEPARIN SODIUM
     Indication: Management of reproduction
  6. HEPARIN [Suspect]
     Active Substance: HEPARIN SODIUM
     Route: 065
  7. HEPARIN [Suspect]
     Active Substance: HEPARIN SODIUM
     Route: 065
  8. HEPARIN [Suspect]
     Active Substance: HEPARIN SODIUM
  9. ASPIRIN [Suspect]
     Active Substance: ASPIRIN
     Indication: Management of reproduction
  10. ASPIRIN [Suspect]
     Active Substance: ASPIRIN
     Route: 065
  11. ASPIRIN [Suspect]
     Active Substance: ASPIRIN
     Route: 065
  12. ASPIRIN [Suspect]
     Active Substance: ASPIRIN

REACTIONS (3)
  - Abortion spontaneous [Recovered/Resolved]
  - Off label use [Recovered/Resolved]
  - Maternal exposure during pregnancy [Recovered/Resolved]
